FAERS Safety Report 4963079-4 (Version None)
Quarter: 2006Q2

REPORT INFORMATION
  Report Type: 
  Country: None (occurrence: None)
  Receive Date: 20060405
  Receipt Date: 20051222
  Transmission Date: 20061013
  Serious: Yes (Life-Threatening, Hospitalization)
  Sender: FDA-Public Use
  Company Number: 200513000BWH

PATIENT
  Age: 3 Year
  Sex: Female

DRUGS (3)
  1. ANCEF [Suspect]
     Indication: DRUG USE FOR UNKNOWN INDICATION
     Route: 042
     Dates: start: 20051214
  2. TRASYLOL [Suspect]
     Indication: MITRAL VALVE REPAIR
     Dosage: 1ML SINGLE DOSE
     Route: 042
     Dates: start: 20051214, end: 20051214
  3. ENALAPRIL MALEATE [Concomitant]

REACTIONS (12)
  - ATRIAL SEPTAL DEFECT [None]
  - BLOOD PRESSURE DECREASED [None]
  - CARDIOMEGALY [None]
  - DRUG HYPERSENSITIVITY [None]
  - HYPERSENSITIVITY [None]
  - MITRAL VALVE INCOMPETENCE [None]
  - MITRAL VALVE PROLAPSE [None]
  - OBSTRUCTIVE AIRWAYS DISORDER [None]
  - OXYGEN SATURATION DECREASED [None]
  - PETECHIAE [None]
  - URTICARIA [None]
  - VENTRICULAR SEPTAL DEFECT [None]
